FAERS Safety Report 22277324 (Version 6)
Quarter: 2023Q4

REPORT INFORMATION
  Report Type: Report from Study
  Country: DE (occurrence: DE)
  Receive Date: 20230503
  Receipt Date: 20231030
  Transmission Date: 20240110
  Serious: Yes (Death)
  Sender: FDA-Public Use
  Company Number: DE-JNJFOC-20230465476

PATIENT
  Age: 61 Year
  Sex: Female
  Weight: 130 kg

DRUGS (18)
  1. TECLISTAMAB [Suspect]
     Active Substance: TECLISTAMAB
     Indication: Plasma cell myeloma
     Route: 058
     Dates: start: 20230320
  2. TECLISTAMAB [Suspect]
     Active Substance: TECLISTAMAB
     Route: 058
     Dates: end: 20230426
  3. FOSCAN [Concomitant]
     Indication: Product used for unknown indication
     Route: 048
  4. TAXIM [Concomitant]
     Indication: Product used for unknown indication
     Dosage: 1-1-0
     Route: 048
  5. AMLODIPINE [Concomitant]
     Active Substance: AMLODIPINE BESYLATE
     Indication: Product used for unknown indication
     Route: 048
  6. VALSARTAN [Concomitant]
     Active Substance: VALSARTAN
     Indication: Product used for unknown indication
     Route: 048
  7. ATORVASTATIN [Concomitant]
     Active Substance: ATORVASTATIN
     Indication: Product used for unknown indication
     Route: 048
  8. PANTOPRAZOLE [Concomitant]
     Active Substance: PANTOPRAZOLE
     Indication: Product used for unknown indication
     Route: 048
  9. MESALAMINE [Concomitant]
     Active Substance: MESALAMINE
     Indication: Product used for unknown indication
     Dosage: 2-2-2
     Route: 048
  10. CHOLECALCIFEROL [Concomitant]
     Active Substance: CHOLECALCIFEROL
     Indication: Product used for unknown indication
     Route: 048
  11. OXYCODONE [Concomitant]
     Active Substance: OXYCODONE
     Indication: Product used for unknown indication
     Route: 048
  12. GABAPENTIN [Concomitant]
     Active Substance: GABAPENTIN
     Indication: Product used for unknown indication
     Dosage: 0-0-1
     Route: 048
  13. LEVODOPA [Concomitant]
     Active Substance: LEVODOPA
     Indication: Product used for unknown indication
     Dosage: 0-0-1
     Route: 048
  14. CONTRIMOXAZOLE [Concomitant]
     Indication: Product used for unknown indication
     Route: 048
  15. VALTREX [Concomitant]
     Active Substance: VALACYCLOVIR HYDROCHLORIDE
     Indication: Product used for unknown indication
     Route: 048
  16. LANTUS [Concomitant]
     Active Substance: INSULIN GLARGINE
     Indication: Product used for unknown indication
     Route: 058
  17. NOVORAPID [Concomitant]
     Active Substance: INSULIN ASPART
     Indication: Product used for unknown indication
     Route: 058
  18. LIRAGLUTIDE [Concomitant]
     Active Substance: LIRAGLUTIDE
     Indication: Product used for unknown indication
     Route: 058

REACTIONS (1)
  - Death [Fatal]
